FAERS Safety Report 11457396 (Version 1)
Quarter: 2015Q3

REPORT INFORMATION
  Report Type: Report from Study
  Country: GB (occurrence: None)
  Receive Date: 20150902
  Receipt Date: 20150902
  Transmission Date: 20151125
  Serious: Yes (Death)
  Sender: FDA-Public Use
  Company Number: KAD201508-002919

PATIENT
  Age: 67 Year
  Sex: Male
  Weight: 89.7 kg

DRUGS (12)
  1. WARFARIN [Concomitant]
     Active Substance: WARFARIN
  2. SYMBICORT [Concomitant]
     Active Substance: BUDESONIDE\FORMOTEROL FUMARATE DIHYDRATE
  3. DAKTARIN [Concomitant]
     Active Substance: MICONAZOLE NITRATE
  4. RIBAVIRIN (RIBAVIRIN) [Suspect]
     Active Substance: RIBAVIRIN
     Route: 048
     Dates: start: 20140929, end: 20150315
  5. FUROSEMDIE [Concomitant]
  6. RAMIPRIL. [Concomitant]
     Active Substance: RAMIPRIL
  7. SOFOSBUVIR (SOFOSBUVIR) [Suspect]
     Active Substance: SOFOSBUVIR
     Route: 048
     Dates: start: 20140929, end: 20150315
  8. CARBOCYSTEINE [Concomitant]
     Active Substance: CARBOCYSTEINE
  9. SPIRIVA [Concomitant]
     Active Substance: TIOTROPIUM BROMIDE MONOHYDRATE
  10. PARACETAMOL [Concomitant]
     Active Substance: ACETAMINOPHEN
  11. BISOPROLOL [Concomitant]
     Active Substance: BISOPROLOL
  12. SALBUTAMOL [Concomitant]
     Active Substance: ALBUTEROL

REACTIONS (2)
  - Cardiac failure congestive [None]
  - Lower respiratory tract infection [None]

NARRATIVE: CASE EVENT DATE: 20150711
